FAERS Safety Report 5852324-9 (Version None)
Quarter: 2008Q3

REPORT INFORMATION
  Report Type: 
  Country: None (occurrence: None)
  Receive Date: 20080821
  Receipt Date: 20080813
  Transmission Date: 20090109
  Serious: Yes (Hospitalization, Other)
  Sender: FDA-Public Use
  Company Number: PHHY2008CA17564

PATIENT

DRUGS (2)
  1. LIORESAL [Suspect]
     Indication: MUSCLE SPASMS
     Dosage: 100 MG
     Route: 048
  2. LIORESAL [Suspect]
     Dosage: 10 MG, TID
     Route: 048

REACTIONS (7)
  - AGITATION [None]
  - BLOOD CREATININE INCREASED [None]
  - CONFUSIONAL STATE [None]
  - NEPHROSTOMY TUBE PLACEMENT [None]
  - PAIN [None]
  - PARANOIA [None]
  - RENAL FAILURE [None]
